FAERS Safety Report 8880476 (Version 2)
Quarter: 2013Q1

REPORT INFORMATION
  Report Type: Spontaneous
  Country: BR (occurrence: BR)
  Receive Date: 20121101
  Receipt Date: 20130208
  Transmission Date: 20140127
  Serious: Yes (Hospitalization, Disabling, Other)
  Sender: FDA-Public Use
  Company Number: BR-ASTRAZENECA-2012SE81868

PATIENT
  Age: 933 Month
  Sex: Male
  Weight: 96 kg

DRUGS (4)
  1. CRESTOR [Suspect]
     Route: 048
  2. PANTOPRAZOLE [Concomitant]
     Indication: GASTRITIS PROPHYLAXIS
     Dosage: DAILY
     Route: 048
  3. ENALAPRIL [Concomitant]
     Indication: HYPERTENSION
     Dosage: TWICE A DAY
     Route: 048
  4. ASA [Concomitant]
     Route: 048

REACTIONS (4)
  - Cerebrovascular accident [Recovered/Resolved with Sequelae]
  - Hemiplegia [Recovering/Resolving]
  - Cholelithiasis [Not Recovered/Not Resolved]
  - Pancreatitis [Not Recovered/Not Resolved]
